FAERS Safety Report 24387333 (Version 3)
Quarter: 2024Q4

REPORT INFORMATION
  Report Type: Report from Study
  Country: MX (occurrence: MX)
  Receive Date: 20241002
  Receipt Date: 20241004
  Transmission Date: 20250114
  Serious: Yes (Hospitalization, Other)
  Sender: NOVARTIS
  Company Number: MX-002147023-NVSC2024MX089596

PATIENT
  Age: 51 Year
  Sex: Female
  Weight: 72 kg

DRUGS (6)
  1. KISQALI [Suspect]
     Active Substance: RIBOCICLIB
     Indication: Breast cancer
     Dosage: 400 MG, QD (2 X 200MG TABLETS A DAY)
     Route: 048
     Dates: start: 20240101, end: 20240716
  2. KISQALI [Suspect]
     Active Substance: RIBOCICLIB
     Dosage: 2 DOSAGE FORM, QD (2 TABLETS 200MG)
     Route: 048
     Dates: start: 20240401, end: 20240923
  3. KISQALI [Suspect]
     Active Substance: RIBOCICLIB
     Dosage: 2 X 200MG TABLETS, A DAY
     Route: 048
     Dates: start: 20240805
  4. KISQALI [Suspect]
     Active Substance: RIBOCICLIB
     Dosage: 400 MG, QD (2 X 200MG TABLETS, QD (IN THE MORNING))
     Route: 048
  5. KISQALI [Suspect]
     Active Substance: RIBOCICLIB
     Dosage: 400 MG, QD (2 X 200MG TABLETS, QD)
     Route: 048
  6. ANASTROZOLE [Concomitant]
     Active Substance: ANASTROZOLE
     Indication: Breast cancer
     Dosage: 2 DOSAGE FORM, QD
     Route: 048
     Dates: start: 20240101

REACTIONS (51)
  - Urinary tract infection [Not Recovered/Not Resolved]
  - Urinary tract inflammation [Not Recovered/Not Resolved]
  - Gait inability [Not Recovered/Not Resolved]
  - Abdominal pain [Not Recovered/Not Resolved]
  - Musculoskeletal pain [Not Recovered/Not Resolved]
  - Back pain [Not Recovered/Not Resolved]
  - Cystitis [Not Recovered/Not Resolved]
  - Pelvic pain [Unknown]
  - Bone pain [Not Recovered/Not Resolved]
  - Leukopenia [Not Recovered/Not Resolved]
  - Lymphopenia [Not Recovered/Not Resolved]
  - Diverticulum intestinal [Not Recovered/Not Resolved]
  - Obesity [Not Recovered/Not Resolved]
  - Discomfort [Not Recovered/Not Resolved]
  - Diabetes mellitus [Unknown]
  - Metastases to bone [Not Recovered/Not Resolved]
  - Weight decreased [Not Recovered/Not Resolved]
  - Decreased immune responsiveness [Unknown]
  - Diarrhoea [Recovered/Resolved]
  - Oropharyngeal pain [Recovered/Resolved]
  - Headache [Unknown]
  - Asthenia [Unknown]
  - Weight increased [Unknown]
  - Illness [Unknown]
  - Drug hypersensitivity [Unknown]
  - Hypertension [Unknown]
  - Fatigue [Not Recovered/Not Resolved]
  - Ageusia [Unknown]
  - Hot flush [Unknown]
  - Constipation [Unknown]
  - Increased appetite [Unknown]
  - Vision blurred [Unknown]
  - Joint dislocation [Unknown]
  - Mouth injury [Unknown]
  - Anger [Unknown]
  - Depression [Unknown]
  - Nausea [Unknown]
  - Malaise [Unknown]
  - Somnolence [Not Recovered/Not Resolved]
  - Depressed mood [Unknown]
  - Wound dehiscence [Recovering/Resolving]
  - Erythema [Recovering/Resolving]
  - Skin burning sensation [Recovering/Resolving]
  - Glossodynia [Recovered/Resolved]
  - Incorrect dose administered [Unknown]
  - Blood glucose increased [Not Recovered/Not Resolved]
  - Skin lesion [Unknown]
  - Feeling hot [Unknown]
  - Hyperhidrosis [Unknown]
  - Renal disorder [Unknown]
  - Drug ineffective [Unknown]

NARRATIVE: CASE EVENT DATE: 20240101
